FAERS Safety Report 5025710-7 (Version None)
Quarter: 2006Q2

REPORT INFORMATION
  Report Type: 
  Country: None (occurrence: None)
  Receive Date: 20060427
  Receipt Date: 20050708
  Transmission Date: 20061013
  Serious: Yes (Other)
  Sender: FDA-Public Use
  Company Number: 2005098752

PATIENT
  Age: 62 Year
  Sex: Male
  Weight: 81.6475 kg

DRUGS (7)
  1. ZITHROMAX [Suspect]
     Indication: PHARYNGOLARYNGEAL PAIN
     Dosage: 500 MG (500 MG, DAILY), ORAL
     Route: 048
     Dates: start: 20050520, end: 20050521
  2. LIPITOR [Suspect]
     Indication: ILL-DEFINED DISORDER
     Dosage: ORAL
     Route: 048
     Dates: end: 20050521
  3. LOTREL [Suspect]
     Indication: ILL-DEFINED DISORDER
     Dosage: ORAL
     Route: 048
     Dates: end: 20050521
  4. UROXATRAL [Suspect]
     Indication: ILL-DEFINED DISORDER
     Dates: end: 20050521
  5. ASPIRIN [Suspect]
     Indication: ILL-DEFINED DISORDER
     Dates: end: 20050521
  6. NEXIUM [Suspect]
     Indication: ILL-DEFINED DISORDER
     Dates: end: 20050521
  7. FOLIC ACID [Concomitant]

REACTIONS (2)
  - ANGIONEUROTIC OEDEMA [None]
  - SWOLLEN TONGUE [None]
